FAERS Safety Report 5477661-1 (Version None)
Quarter: 2007Q4

REPORT INFORMATION
  Report Type: 
  Country: None (occurrence: None)
  Receive Date: 20071002
  Receipt Date: 20070917
  Transmission Date: 20080405
  Serious: Yes (Congenital Anomaly)
  Sender: FDA-Public Use
  Company Number: 161016ISR

PATIENT

DRUGS (2)
  1. CARBAMAZEPINE [Suspect]
     Indication: EPILEPSY
     Dosage: 650 MG TRANSPLACENTAL
     Route: 064
  2. PHENOBARBITAL TAB [Suspect]
     Indication: EPILEPSY
     Dosage: 130 MG TRANSPLACENTAL
     Route: 064

REACTIONS (2)
  - CONGENITAL CYSTIC KIDNEY DISEASE [None]
  - DRUG EXPOSURE DURING PREGNANCY [None]
